FAERS Safety Report 10095685 (Version 1)
Quarter: 2014Q2

REPORT INFORMATION
  Report Type: Spontaneous
  Country: GB (occurrence: GB)
  Receive Date: 20140422
  Receipt Date: 20140422
  Transmission Date: 20141212
  Serious: Yes (Other)
  Sender: FDA-Public Use
  Company Number: GB-PFIZER INC-2014109010

PATIENT
  Age: 71 Year
  Sex: Male
  Weight: 67 kg

DRUGS (17)
  1. INSPRA [Suspect]
     Dosage: UNK
     Dates: start: 20140409
  2. ASPIRIN [Concomitant]
     Dosage: UNK
     Dates: start: 20140218
  3. CALCEOS [Concomitant]
     Dates: start: 20140109, end: 20140208
  4. CALCEOS [Concomitant]
     Dosage: UNK
     Dates: start: 20140211
  5. CARVEDILOL [Concomitant]
     Dosage: UNK
     Dates: start: 20131230
  6. CITALOPRAM [Concomitant]
     Dosage: UNK
     Dates: start: 20131126, end: 20140121
  7. CITALOPRAM [Concomitant]
     Dosage: UNK
     Dates: start: 20140128
  8. DIGOXIN [Concomitant]
     Dosage: UNK
     Dates: start: 20131203, end: 20140212
  9. DIGOXIN [Concomitant]
     Dates: start: 20140324
  10. FUROSEMIDE [Concomitant]
     Dosage: UNK
     Dates: start: 20131126
  11. LOSARTAN [Concomitant]
     Dosage: UNK
     Dates: start: 20131203
  12. OMEPRAZOLE [Concomitant]
     Dosage: UNK
     Dates: start: 20131126
  13. PARACETAMOL [Concomitant]
     Dosage: UNK
     Dates: start: 20140218, end: 20140318
  14. PREDNISOLONE [Concomitant]
     Dosage: UNK
     Dates: start: 20131218, end: 20140115
  15. PREDNISOLONE [Concomitant]
     Dosage: UNK
     Dates: start: 20140120, end: 20140409
  16. SPIRONOLACTONE [Concomitant]
     Dosage: UNK
     Dates: start: 20131218, end: 20140212
  17. SPIRONOLACTONE [Concomitant]
     Dosage: UNK
     Dates: start: 20140218

REACTIONS (1)
  - Myalgia [Unknown]
